FAERS Safety Report 7120118-2 (Version None)
Quarter: 2010Q4

REPORT INFORMATION
  Report Type: 
  Country: None (occurrence: None)
  Receive Date: 20101123
  Receipt Date: 20101117
  Transmission Date: 20110411
  Serious: Yes (Death)
  Sender: FDA-Public Use
  Company Number: VE-PFIZER INC-2010141086

PATIENT
  Age: 77 Year
  Sex: Male

DRUGS (2)
  1. CADUET [Suspect]
     Indication: HYPERCHOLESTEROLAEMIA
     Dosage: 5/10MG 1X/DAY
     Route: 048
  2. CADUET [Suspect]
     Indication: HYPERTENSION

REACTIONS (1)
  - INFARCTION [None]
